FAERS Safety Report 8109345 (Version 3)
Quarter: 2013Q4

REPORT INFORMATION
  Report Type: Spontaneous
  Country: US (occurrence: US)
  Receive Date: 20110826
  Receipt Date: 20131202
  Transmission Date: 20140711
  Serious: Yes (Hospitalization, Other)
  Sender: FDA-Public Use
  Company Number: US-BAYER-2011-075250

PATIENT
  Age: 32 Year
  Sex: Female

DRUGS (4)
  1. YAZ [Suspect]
     Indication: PRODUCT USED FOR UNKNOWN INDICATION
     Dosage: UNK
     Dates: start: 2008, end: 2009
  2. ZYRTEC [Concomitant]
  3. LORTAB [Concomitant]
     Dosage: UNK UNK, PRN
  4. METFORMIN [Concomitant]
     Dosage: 1000 MG, DAILY

REACTIONS (4)
  - Gallbladder injury [None]
  - Injury [None]
  - Pain [None]
  - Cholecystitis chronic [None]
